FAERS Safety Report 19798508 (Version 1)
Quarter: 2021Q3

REPORT INFORMATION
  Report Type: Spontaneous
  Country: JP (occurrence: JP)
  Receive Date: 20210907
  Receipt Date: 20210907
  Transmission Date: 20211014
  Serious: Yes (Hospitalization)
  Sender: FDA-Public Use
  Company Number: JP-PFIZER INC-202100910531

PATIENT
  Age: 83 Year
  Sex: Male

DRUGS (1)
  1. VYNDAQEL [Suspect]
     Active Substance: TAFAMIDIS MEGLUMINE
     Dosage: 80 MG, DAILY
     Route: 048
     Dates: start: 20210201

REACTIONS (1)
  - Right ventricular failure [Recovered/Resolved]

NARRATIVE: CASE EVENT DATE: 20210716
